FAERS Safety Report 4763615-7 (Version None)
Quarter: 2005Q3

REPORT INFORMATION
  Report Type: 
  Country: None (occurrence: None)
  Receive Date: 20050901
  Receipt Date: 20050725
  Transmission Date: 20060218
  Serious: No
  Sender: FDA-Public Use
  Company Number: 200511488BWH

PATIENT
  Sex: Male

DRUGS (3)
  1. LEVITRA [Suspect]
     Dosage: 10 MG,O, ORAL; 20 MG OW, ORAL
     Route: 048
     Dates: start: 20050701
  2. DETROL [Concomitant]
  3. EYE DROPS [Concomitant]

REACTIONS (1)
  - ERECTILE DYSFUNCTION [None]
